FAERS Safety Report 7169332 (Version 3)
Quarter: 2019Q1

REPORT INFORMATION
  Report Type: Spontaneous
  Country: ES (occurrence: ES)
  Receive Date: 20091106
  Receipt Date: 20190205
  Transmission Date: 20190418
  Serious: Yes (Hospitalization, Other)
  Sender: FDA-Public Use
  Company Number: GXKR2009ES11940

PATIENT
  Age: 33 Year
  Sex: Female

DRUGS (6)
  1. DIAZEPAM. [Suspect]
     Active Substance: DIAZEPAM
     Indication: DEPRESSION
     Dosage: 10 MG, TID
     Route: 065
  2. DIAZEPAM. [Suspect]
     Active Substance: DIAZEPAM
     Indication: FIBROMYALGIA
  3. LORMETAZEPAM [Suspect]
     Active Substance: LORMETAZEPAM
     Indication: FIBROMYALGIA
  4. CITALOPRAM [Concomitant]
     Active Substance: CITALOPRAM HYDROBROMIDE
     Indication: FIBROMYALGIA
  5. LORMETAZEPAM [Suspect]
     Active Substance: LORMETAZEPAM
     Indication: DEPRESSION
     Dosage: 2 MG/DAY
     Route: 065
  6. CITALOPRAM [Concomitant]
     Active Substance: CITALOPRAM HYDROBROMIDE
     Indication: DEPRESSION
     Dosage: 30 MG/DAY
     Route: 065

REACTIONS (27)
  - Depression [Unknown]
  - Dizziness [Unknown]
  - Irritability [Unknown]
  - Withdrawal syndrome [Unknown]
  - Gait disturbance [Unknown]
  - Influenza like illness [Unknown]
  - Drug abuse [Unknown]
  - Drug dependence [Unknown]
  - Hypophagia [Unknown]
  - Somnolence [Unknown]
  - Fatigue [Unknown]
  - Dysarthria [Unknown]
  - Anxiety [Unknown]
  - Paraesthesia [Unknown]
  - Photophobia [Unknown]
  - Miosis [Unknown]
  - Eyelid ptosis [Unknown]
  - Decreased appetite [Unknown]
  - Hypokinesia [Unknown]
  - Hyperhidrosis [Unknown]
  - Tachyarrhythmia [Unknown]
  - Persistent depressive disorder [Unknown]
  - Disorientation [Unknown]
  - Suicidal ideation [Unknown]
  - Insomnia [Unknown]
  - Palpitations [Unknown]
  - Sinus tachycardia [Unknown]
